FAERS Safety Report 24285991 (Version 6)
Quarter: 2024Q4

REPORT INFORMATION
  Report Type: Spontaneous
  Country: US (occurrence: US)
  Receive Date: 20240905
  Receipt Date: 20241112
  Transmission Date: 20250115
  Serious: No
  Sender: PFIZER
  Company Number: US-PFIZER INC-202400249235

PATIENT
  Age: 55 Year
  Sex: Female

DRUGS (1)
  1. ESTRING [Suspect]
     Active Substance: ESTRADIOL
     Indication: Postmenopause
     Dosage: USE FOR 3 MONTHS THEN, CHANGE OUT, PUT NEW ONE IN

REACTIONS (2)
  - Medical device site pain [Unknown]
  - Device difficult to use [Unknown]
